FAERS Safety Report 5583793-X (Version None)
Quarter: 2008Q1

REPORT INFORMATION
  Report Type: 
  Country: None (occurrence: None)
  Receive Date: 20080108
  Receipt Date: 20071227
  Transmission Date: 20080703
  Serious: Yes (Hospitalization)
  Sender: FDA-Public Use
  Company Number: JP-JNJFOC-20071206351

PATIENT
  Age: 91 Year
  Sex: Male

DRUGS (1)
  1. FINIBAX [Suspect]
     Indication: BURN INFECTION
     Route: 041

REACTIONS (1)
  - MUSCLE SPASMS [None]
